FAERS Safety Report 23148315 (Version 2)
Quarter: 2023Q4

REPORT INFORMATION
  Report Type: Report from Study
  Country: CN (occurrence: CN)
  Receive Date: 20231106
  Receipt Date: 20231122
  Transmission Date: 20240109
  Serious: Yes (Other)
  Sender: FDA-Public Use
  Company Number: CN-ASTELLAS-2023US032979

PATIENT

DRUGS (1)
  1. ENFORTUMAB VEDOTIN [Suspect]
     Active Substance: ENFORTUMAB VEDOTIN
     Indication: Drug therapy
     Dosage: 80 MG,CYCLIC (80MG PER DOSE, DAYS 1, 8 AND 15 OF A 28-DAY CYCLE)
     Route: 042
     Dates: start: 202307, end: 202308

REACTIONS (3)
  - Myocardial necrosis marker increased [Unknown]
  - Coagulopathy [Unknown]
  - Drug intolerance [Unknown]

NARRATIVE: CASE EVENT DATE: 20230701
